FAERS Safety Report 18453275 (Version 1)
Quarter: 2020Q4

REPORT INFORMATION
  Report Type: Spontaneous
  Country: US (occurrence: US)
  Receive Date: 20201102
  Receipt Date: 20201102
  Transmission Date: 20210114
  Serious: Yes (Disabling)
  Sender: FDA-Public Use
  Company Number: None

PATIENT
  Age: 33 Year
  Sex: Female
  Weight: 60.75 kg

DRUGS (3)
  1. STIMATE [Suspect]
     Active Substance: DESMOPRESSIN ACETATE
     Indication: POST PROCEDURAL HAEMORRHAGE
     Route: 055
     Dates: start: 20200724, end: 20200823
  2. TAMOXIFEN [Concomitant]
     Active Substance: TAMOXIFEN
  3. STIMATE [Suspect]
     Active Substance: DESMOPRESSIN ACETATE
     Indication: HAEMOSTASIS
     Route: 055
     Dates: start: 20200724, end: 20200823

REACTIONS (5)
  - Vomiting [None]
  - Headache [None]
  - Muscle spasms [None]
  - Dehydration [None]
  - Fatigue [None]

NARRATIVE: CASE EVENT DATE: 20200724
